FAERS Safety Report 16390090 (Version 3)
Quarter: 2020Q1

REPORT INFORMATION
  Report Type: Report from Study
  Country: GB (occurrence: GB)
  Receive Date: 20190604
  Receipt Date: 20200228
  Transmission Date: 20200409
  Serious: Yes (Other)
  Sender: FDA-Public Use
  Company Number: GB-JNJFOC-20190503601

PATIENT
  Sex: Female

DRUGS (1)
  1. STELARA [Suspect]
     Active Substance: USTEKINUMAB
     Indication: PSORIASIS
     Route: 058
     Dates: start: 20151009

REACTIONS (5)
  - Anaemia [Unknown]
  - Fatigue [Unknown]
  - Psoriasis [Unknown]
  - Herpes zoster [Unknown]
  - Cataract [Unknown]
